FAERS Safety Report 4808595-0 (Version None)
Quarter: 2005Q4

REPORT INFORMATION
  Report Type: 
  Country: None (occurrence: None)
  Receive Date: 20051025
  Receipt Date: 20051013
  Transmission Date: 20060501
  Serious: Yes (Death, Life-Threatening)
  Sender: FDA-Public Use
  Company Number: FR-GLAXOSMITHKLINE-B0397882A

PATIENT
  Age: 55 Year
  Sex: Male
  Weight: 65 kg

DRUGS (17)
  1. ONDANSETRON [Suspect]
     Indication: PROPHYLAXIS OF NAUSEA AND VOMITING
     Dosage: 8MG PER DAY
     Route: 042
     Dates: start: 20050921, end: 20050922
  2. LAROXYL [Suspect]
     Dosage: 5MG PER DAY
     Route: 048
     Dates: end: 20050923
  3. SOLU-MEDROL [Suspect]
     Dosage: 60MG PER DAY
     Route: 048
     Dates: start: 20050921, end: 20050921
  4. ACETAMINOPHEN [Suspect]
     Dosage: 3G PER DAY
     Route: 048
     Dates: end: 20050923
  5. CISPLATIN [Suspect]
     Indication: NON-SMALL CELL LUNG CANCER METASTATIC
     Dosage: 135MG SINGLE DOSE
     Route: 042
     Dates: start: 20050921, end: 20050921
  6. TAXOTERE [Suspect]
     Indication: NON-SMALL CELL LUNG CANCER METASTATIC
     Dosage: 130MG SINGLE DOSE
     Route: 042
     Dates: start: 20050921, end: 20050921
  7. SKENAN [Concomitant]
     Route: 065
     Dates: end: 20050923
  8. MORPHINE SULFATE [Concomitant]
     Route: 065
     Dates: end: 20050923
  9. MEDROL [Concomitant]
     Route: 065
     Dates: end: 20050923
  10. NEXIUM [Concomitant]
     Route: 065
     Dates: end: 20050923
  11. LOVENOX [Concomitant]
     Route: 065
  12. FORLAX [Concomitant]
     Route: 065
     Dates: end: 20050923
  13. PRIMPERAN INJ [Concomitant]
     Route: 065
     Dates: start: 20050919
  14. KETOPROFEN [Concomitant]
     Route: 065
     Dates: start: 20050919, end: 20050923
  15. HYDRATION [Concomitant]
     Route: 065
  16. LASILIX [Concomitant]
     Route: 065
     Dates: start: 20050921, end: 20050922
  17. RADIOTHERAPY [Concomitant]
     Indication: NON-SMALL CELL LUNG CANCER METASTATIC
     Dates: start: 20050921, end: 20050922

REACTIONS (8)
  - ANXIETY [None]
  - ASTHENIA [None]
  - CHEST X-RAY ABNORMAL [None]
  - DYSPNOEA [None]
  - HYPOXIA [None]
  - INTERSTITIAL LUNG DISEASE [None]
  - OBSTRUCTIVE AIRWAYS DISORDER [None]
  - RESPIRATORY DISTRESS [None]
